FAERS Safety Report 8885809 (Version 2)
Quarter: 2012Q4

REPORT INFORMATION
  Report Type: 
  Country: FR (occurrence: FR)
  Receive Date: 20121102
  Receipt Date: 20121116
  Transmission Date: 20130627
  Serious: Yes (Hospitalization, Other)
  Sender: FDA-Public Use
  Company Number: FR-PFIZER INC-2012270306

PATIENT
  Age: 26 Year
  Sex: Female

DRUGS (7)
  1. XANAX [Suspect]
     Dosage: 3 DF, daily
     Route: 048
     Dates: start: 20120928, end: 20121005
  2. RIVOTRIL [Interacting]
     Indication: EPILEPSY
     Dosage: 3 gtt in the morning, 10 gtt in the evening
     Route: 048
     Dates: start: 20120914, end: 20121005
  3. CAFFEINE\PHENOBARBITAL [Interacting]
     Dosage: 50 mg, 1x/day
     Route: 048
     Dates: end: 20121005
  4. CAFFEINE\PHENOBARBITAL [Interacting]
     Dosage: 15 mg, 1x/day
     Route: 048
     Dates: end: 20121005
  5. LIORESAL [Interacting]
     Dosage: UNK
     Route: 037
  6. PROZAC [Concomitant]
     Dosage: 1 DF daily
     Route: 048
     Dates: end: 20121005
  7. DIANE-35 [Concomitant]
     Indication: ACNE
     Dosage: 1 DF, daily
     Route: 048

REACTIONS (3)
  - Drug interaction [Recovered/Resolved]
  - Disturbance in attention [Recovered/Resolved]
  - Somnolence [Recovered/Resolved]
